FAERS Safety Report 4409801-7 (Version None)
Quarter: 2004Q3

REPORT INFORMATION
  Report Type: 
  Country: None (occurrence: None)
  Receive Date: 20040723
  Receipt Date: 20040712
  Transmission Date: 20050211
  Serious: Yes (Hospitalization)
  Sender: FDA-Public Use
  Company Number: 206685

PATIENT
  Age: 68 Year
  Sex: Female

DRUGS (6)
  1. BEVACIZUMAB(BEVACIZUMAB) PWDR + SOLVENT, INFUSION SOLN, 100MG [Suspect]
     Indication: COLORECTAL CANCER METASTATIC
     Dosage: 5 MG/KG, Q2W, INTRAVENOUS
     Route: 042
     Dates: start: 20040416, end: 20040430
  2. OXALIPLATIN [Suspect]
     Indication: COLORECTAL CANCER METASTATIC
     Dosage: 85 MG/KG, Q2W, INTRAVENOUS
     Route: 042
     Dates: start: 20040416, end: 20040430
  3. FLUOROURACIL [Suspect]
     Indication: COLORECTAL CANCER METASTATIC
     Dosage: 500 MG/M2, 1 WEEK, INTRAVENOUS
     Route: 042
     Dates: start: 20040416, end: 20040430
  4. LEUCOVORIN CALCIUM [Suspect]
     Indication: COLORECTAL CANCER METASTATIC
     Dosage: 20 MG/M2, 1/WEEK, INTRAVENOUS
     Route: 042
     Dates: start: 20040416, end: 20040430
  5. OMEPRAZOLE [Concomitant]
  6. HYDROCHLOROTHIAZIDE + TRIAMTERENE [Concomitant]

REACTIONS (14)
  - BACTERIA URINE IDENTIFIED [None]
  - COUGH [None]
  - CROHN'S DISEASE [None]
  - DEHYDRATION [None]
  - ENTEROCOLITIS [None]
  - HAEMORRHOIDS [None]
  - ILEITIS [None]
  - ILEUS [None]
  - INTESTINAL ULCER [None]
  - MUCOSAL INFLAMMATION [None]
  - OESOPHAGEAL ULCER [None]
  - OESOPHAGITIS [None]
  - URINARY TRACT INFECTION [None]
  - YERSINIA INFECTION [None]
